FAERS Safety Report 12114854 (Version 1)
Quarter: 2016Q1

REPORT INFORMATION
  Report Type: Spontaneous
  Country: US (occurrence: None)
  Receive Date: 20160224
  Receipt Date: 20160224
  Transmission Date: 20160526
  Serious: Yes (Hospitalization)
  Sender: FDA-Public Use
  Company Number: None

PATIENT
  Age: 27 Year
  Sex: Female
  Weight: 84 kg

DRUGS (8)
  1. DETEMIR INSULIN [Concomitant]
  2. INVOKANA [Suspect]
     Active Substance: CANAGLIFLOZIN
     Indication: DIABETES MELLITUS INADEQUATE CONTROL
     Dosage: 1 TABLET QD ORAL
     Route: 048
     Dates: start: 20140708, end: 20160216
  3. LIRAGLUTIDE [Concomitant]
     Active Substance: LIRAGLUTIDE
  4. SITAGLIPTIN [Concomitant]
     Active Substance: SITAGLIPTIN
  5. LISINOPRIL. [Concomitant]
     Active Substance: LISINOPRIL
  6. METFORMIN [Concomitant]
     Active Substance: METFORMIN HYDROCHLORIDE
  7. ACARBOSE. [Concomitant]
     Active Substance: ACARBOSE
  8. CANAGLIFLOZIN [Concomitant]
     Active Substance: CANAGLIFLOZIN

REACTIONS (1)
  - Ketoacidosis [None]

NARRATIVE: CASE EVENT DATE: 20160216
